FAERS Safety Report 17089358 (Version 2)
Quarter: 2020Q1

REPORT INFORMATION
  Report Type: Spontaneous
  Country: CH (occurrence: CH)
  Receive Date: 20191128
  Receipt Date: 20200108
  Transmission Date: 20200409
  Serious: Yes (Hospitalization, Other)
  Sender: FDA-Public Use
  Company Number: DE-GLAXOSMITHKLINE-DE2019210714

PATIENT
  Age: 68 Year
  Sex: Male
  Weight: 90 kg

DRUGS (1)
  1. VOLTAREN DOLO [Suspect]
     Active Substance: DICLOFENAC
     Indication: LIMB INJURY
     Dosage: 25 MG

REACTIONS (8)
  - Anaphylactic shock [Unknown]
  - Chills [Unknown]
  - Loss of consciousness [Unknown]
  - Erythema [Unknown]
  - Pain [Unknown]
  - Hyperhidrosis [Unknown]
  - Somnolence [Unknown]
  - Hypoaesthesia oral [Unknown]
